FAERS Safety Report 9351732 (Version 4)
Quarter: 2013Q3

REPORT INFORMATION
  Report Type: Spontaneous
  Country: GB (occurrence: GB)
  Receive Date: 20130617
  Receipt Date: 20130826
  Transmission Date: 20140515
  Serious: Yes (Death)
  Sender: FDA-Public Use
  Company Number: GB-BIOGENIDEC-2013BI050552

PATIENT
  Age: 28 Year
  Sex: Female
  Weight: 56 kg

DRUGS (2)
  1. TYSABRI [Suspect]
     Indication: MULTIPLE SCLEROSIS
     Dates: start: 20080701, end: 20121127
  2. FRAGMIN [Concomitant]
     Indication: ANTICOAGULANT THERAPY
     Dates: end: 20130319

REACTIONS (5)
  - Multiple sclerosis [Fatal]
  - Herpes zoster [Not Recovered/Not Resolved]
  - Antiphospholipid antibodies positive [Unknown]
  - Urinary tract infection [Unknown]
  - Infection [Unknown]
